FAERS Safety Report 9940565 (Version 1)
Quarter: 2014Q1

REPORT INFORMATION
  Report Type: Spontaneous
  Country: FR (occurrence: FR)
  Receive Date: 20140303
  Receipt Date: 20140303
  Transmission Date: 20141002
  Serious: Yes (Other)
  Sender: FDA-Public Use
  Company Number: FR-MYLANLABS-2014S1003958

PATIENT
  Age: 70 Year
  Sex: Female

DRUGS (4)
  1. FLUINDIONE [Suspect]
     Indication: DEEP VEIN THROMBOSIS
     Route: 048
     Dates: start: 201111
  2. WARFARIN [Suspect]
     Indication: ANTICOAGULANT THERAPY
     Route: 048
     Dates: start: 201207
  3. CICLOSPORIN [Concomitant]
     Route: 065
  4. DAPSONE [Concomitant]
     Indication: ERYTHEMA ELEVATUM DIUTINUM
     Route: 065

REACTIONS (2)
  - Pyoderma gangrenosum [Recovering/Resolving]
  - Skin ulcer [Recovering/Resolving]
